FAERS Safety Report 21260490 (Version 1)
Quarter: 2022Q3

REPORT INFORMATION
  Report Type: Spontaneous
  Country: CN (occurrence: CN)
  Receive Date: 20220826
  Receipt Date: 20220826
  Transmission Date: 20221027
  Serious: Yes (Other)
  Sender: FDA-Public Use
  Company Number: CN-PFIZER INC-PV202200044027

PATIENT
  Age: 39 Year
  Sex: Male

DRUGS (4)
  1. METHYLPREDNISOLONE [Suspect]
     Active Substance: METHYLPREDNISOLONE
     Dosage: 40 MG, D1-D5
  2. CYCLOPHOSPHAMIDE [Suspect]
     Active Substance: CYCLOPHOSPHAMIDE
     Dosage: 0.4 G, D1-D3
  3. PIRARUBICIN [Suspect]
     Active Substance: PIRARUBICIN
     Dosage: 20 MG, D1-D3
  4. VINCRISTINE [Suspect]
     Active Substance: VINCRISTINE
     Dosage: 2 MG, D1

REACTIONS (3)
  - Laryngeal haemorrhage [Unknown]
  - Infected vasculitis [Unknown]
  - Vascular rupture [Unknown]
